FAERS Safety Report 11545177 (Version 1)
Quarter: 2015Q3

REPORT INFORMATION
  Report Type: Spontaneous
  Country: ES (occurrence: ES)
  Receive Date: 20150924
  Receipt Date: 20150924
  Transmission Date: 20151125
  Serious: Yes (Other)
  Sender: FDA-Public Use
  Company Number: ES-BIOTEST-T 614/15

PATIENT
  Age: 57 Year
  Sex: Female

DRUGS (4)
  1. IVIG [Suspect]
     Active Substance: HUMAN IMMUNOGLOBULIN G
     Indication: CHRONIC INFLAMMATORY DEMYELINATING POLYRADICULONEUROPATHY
     Dosage: MONTHLY, 0.5 G/KG/D IN 12 HOURS DURING 4 DAYS
     Route: 042
  2. DEFLAZACORT [Concomitant]
     Active Substance: DEFLAZACORT
  3. IVIG US [Suspect]
     Active Substance: HUMAN IMMUNOGLOBULIN G
     Indication: CHRONIC INFLAMMATORY DEMYELINATING POLYRADICULONEUROPATHY
     Dosage: MONTHLY, 0.5 G/KG/D IN 12 HOURS DURING 4 DAYS
     Route: 042
  4. AZATHIOPRINE. [Concomitant]
     Active Substance: AZATHIOPRINE

REACTIONS (4)
  - Face oedema [Recovered/Resolved]
  - Localised oedema [Recovered/Resolved]
  - Thrombosis in device [Recovered/Resolved]
  - Superior vena cava syndrome [Recovering/Resolving]
